FAERS Safety Report 5986034-4 (Version None)
Quarter: 2008Q4

REPORT INFORMATION
  Report Type: 
  Country: None (occurrence: None)
  Receive Date: 20081205
  Receipt Date: 20081205
  Transmission Date: 20090506
  Serious: Yes (Hospitalization)
  Sender: FDA-Public Use
  Company Number: None

PATIENT
  Sex: Female
  Weight: 58.9676 kg

DRUGS (2)
  1. DROPERIDOL [Suspect]
     Indication: NAUSEA
     Dosage: 0.625MG X1 IV BOLUS
     Route: 040
     Dates: start: 20080903, end: 20080903
  2. PROCHLORPERAZINE [Suspect]
     Indication: NAUSEA
     Dosage: 10MG X 1 IV BOLUS
     Route: 040
     Dates: start: 20080903, end: 20080903

REACTIONS (9)
  - AKATHISIA [None]
  - CONVULSION [None]
  - DYSPHORIA [None]
  - DYSTONIA [None]
  - INADEQUATE ANALGESIA [None]
  - MUSCULOSKELETAL PAIN [None]
  - RESTLESSNESS [None]
  - TACHYCARDIA [None]
  - UPPER LIMB FRACTURE [None]
